FAERS Safety Report 20541953 (Version 1)
Quarter: 2022Q1

REPORT INFORMATION
  Report Type: Report from Study
  Country: ES (occurrence: ES)
  Receive Date: 20220302
  Receipt Date: 20220302
  Transmission Date: 20220424
  Serious: Yes (Other)
  Sender: FDA-Public Use
  Company Number: ES-JNJFOC-20211205300

PATIENT

DRUGS (3)
  1. TREMFYA [Suspect]
     Active Substance: GUSELKUMAB
     Indication: Psoriasis
     Route: 065
  2. TREMFYA [Suspect]
     Active Substance: GUSELKUMAB
  3. TREMFYA [Suspect]
     Active Substance: GUSELKUMAB

REACTIONS (25)
  - COVID-19 pneumonia [Unknown]
  - Hip fracture [Unknown]
  - Viral pericarditis [Unknown]
  - Acute myocardial infarction [Unknown]
  - Ophthalmic herpes zoster [Unknown]
  - Salmonellosis [Unknown]
  - Influenza [Unknown]
  - Bronchitis [Unknown]
  - Hordeolum [Unknown]
  - Influenza like illness [Unknown]
  - Furuncle [Unknown]
  - Cystitis [Unknown]
  - Hyperuricaemia [Unknown]
  - Proteinuria [Unknown]
  - Leukocytosis [Unknown]
  - Mesenteric panniculitis [Unknown]
  - Perioral dermatitis [Unknown]
  - Hypertension [Unknown]
  - Eczema [Unknown]
  - Anxiety [Unknown]
  - Drug ineffective [Unknown]
  - Injection site reaction [Unknown]
  - Headache [Unknown]
  - Upper respiratory tract infection [Unknown]
  - Arthralgia [Unknown]
